FAERS Safety Report 7790646-5 (Version None)
Quarter: 2011Q3

REPORT INFORMATION
  Report Type: 
  Country: None (occurrence: None)
  Receive Date: 20110930
  Receipt Date: 20110613
  Transmission Date: 20111222
  Serious: No
  Sender: FDA-Public Use
  Company Number: US-BAYER-2011-050890

PATIENT
  Sex: Male

DRUGS (3)
  1. L-ARGININE SUPPLEMENT [Concomitant]
  2. LEVITRA [Suspect]
     Dosage: 20 MG, ONCE
     Route: 048
     Dates: start: 20110612
  3. LEVITRA [Suspect]
     Indication: ERECTILE DYSFUNCTION
     Dosage: 20 MG, ONCE
     Route: 048
     Dates: start: 20110501

REACTIONS (5)
  - ANXIETY [None]
  - SINUS CONGESTION [None]
  - HYPERHIDROSIS [None]
  - FEELING HOT [None]
  - DIZZINESS [None]
